FAERS Safety Report 9188254 (Version 2)
Quarter: 2013Q1

REPORT INFORMATION
  Report Type: Spontaneous
  Country: CA (occurrence: CA)
  Receive Date: 20130325
  Receipt Date: 20130329
  Transmission Date: 20140127
  Serious: Yes (Other)
  Sender: FDA-Public Use
  Company Number: PHHY2013CA028500

PATIENT
  Age: 56 Year
  Sex: Female

DRUGS (4)
  1. ACLASTA [Suspect]
     Indication: OSTEOPOROSIS
     Dosage: 5 MG, UNK
     Route: 042
     Dates: start: 20120606
  2. CIPRALEX [Concomitant]
     Dosage: 10 MG, UNK
  3. CLONAZEPAM [Suspect]
     Dosage: 0.5 MG, PRN
  4. BOTOX [Suspect]
     Dosage: 300 DF, Q3MO
     Route: 058

REACTIONS (6)
  - Pulmonary artery aneurysm [Recovered/Resolved]
  - Dyspnoea [Unknown]
  - Adverse drug reaction [Recovered/Resolved]
  - Pain [Recovered/Resolved]
  - Influenza like illness [Recovered/Resolved]
  - Musculoskeletal pain [Recovered/Resolved]
